FAERS Safety Report 9286970 (Version 1)
Quarter: 2013Q2

REPORT INFORMATION
  Report Type: Spontaneous
  Country: US (occurrence: US)
  Receive Date: 20130513
  Receipt Date: 20130513
  Transmission Date: 20140414
  Serious: Yes (Other)
  Sender: FDA-Public Use
  Company Number: US-ROXANE LABORATORIES, INC.-2013-RO-00732RO

PATIENT
  Age: 43 Year
  Sex: Male
  Weight: 116 kg

DRUGS (1)
  1. OXCARBAZEPINE [Suspect]
     Dosage: 1800 MG
     Dates: start: 2011

REACTIONS (3)
  - Convulsion [Unknown]
  - Fatigue [Recovered/Resolved]
  - Headache [Recovered/Resolved]
